FAERS Safety Report 6333785-8 (Version None)
Quarter: 2009Q3

REPORT INFORMATION
  Report Type: 
  Country: None (occurrence: None)
  Receive Date: 20090829
  Receipt Date: 20090617
  Transmission Date: 20100115
  Serious: No
  Sender: FDA-Public Use
  Company Number: US-ABBOTT-09P-163-0580398-00

PATIENT
  Sex: Female
  Weight: 104.42 kg

DRUGS (9)
  1. SIMCOR [Suspect]
     Indication: BLOOD CHOLESTEROL INCREASED
     Dosage: 500/20 MILLIGRAMS
     Dates: start: 20090510
  2. OTC NIACIN [Concomitant]
     Indication: DRUG USE FOR UNKNOWN INDICATION
  3. FISH OIL [Concomitant]
     Indication: DRUG USE FOR UNKNOWN INDICATION
  4. OSTEOBIFLEX [Concomitant]
     Indication: DRUG USE FOR UNKNOWN INDICATION
  5. WELLBUTRIN [Concomitant]
     Indication: DRUG USE FOR UNKNOWN INDICATION
  6. MELATONIN [Concomitant]
     Indication: DRUG USE FOR UNKNOWN INDICATION
  7. COREG [Concomitant]
     Indication: DRUG USE FOR UNKNOWN INDICATION
  8. FLONASE [Concomitant]
     Indication: DRUG USE FOR UNKNOWN INDICATION
  9. TYLENOL (CAPLET) [Concomitant]
     Indication: DRUG USE FOR UNKNOWN INDICATION

REACTIONS (2)
  - FLUSHING [None]
  - MUSCULOSKELETAL DISCOMFORT [None]
